FAERS Safety Report 6845709-5 (Version None)
Quarter: 2010Q3

REPORT INFORMATION
  Report Type: 
  Country: None (occurrence: None)
  Receive Date: 20100715
  Receipt Date: 20071024
  Transmission Date: 20110219
  Serious: No
  Sender: FDA-Public Use
  Company Number: US-PFIZER INC-2007070039

PATIENT
  Sex: Female
  Weight: 124.7 kg

DRUGS (6)
  1. CHANTIX [Suspect]
     Indication: SMOKING CESSATION THERAPY
     Route: 048
     Dates: start: 20070817, end: 20070910
  2. HYDROCHLOROTHIAZIDE [Concomitant]
  3. NEXIUM [Concomitant]
  4. ACETYLSALICYLIC ACID [Concomitant]
  5. PROVIGIL [Concomitant]
  6. OXYGEN [Concomitant]

REACTIONS (3)
  - FORMICATION [None]
  - NERVOUSNESS [None]
  - WEIGHT INCREASED [None]
